FAERS Safety Report 6093899-7 (Version None)
Quarter: 2009Q1

REPORT INFORMATION
  Report Type: 
  Country: None (occurrence: None)
  Receive Date: 20090224
  Receipt Date: 20090224
  Transmission Date: 20090719
  Serious: Yes (Other)
  Sender: FDA-Public Use
  Company Number: None

PATIENT
  Sex: Female

DRUGS (2)
  1. ARTICAINE HYDROCHLORIDE WITH EPINEPHRINE 1:100000 [Suspect]
     Indication: TOOTH EXTRACTION
     Dosage: 1 CARPULE SEPTOCAINE DENTAL
     Route: 004
     Dates: start: 20090106, end: 20090106
  2. LIDOCAINE 2% W/EPINEPHRINE 1:200000 INJ [Suspect]
     Dosage: 1 CARPULE LIDOCAINE DENTAL
     Route: 004
     Dates: start: 20090106, end: 20090106

REACTIONS (3)
  - HYPOAESTHESIA [None]
  - HYPOAESTHESIA ORAL [None]
  - JAW DISORDER [None]
